FAERS Safety Report 9316594 (Version 3)
Quarter: 2013Q2

REPORT INFORMATION
  Report Type: Spontaneous
  Country: DE (occurrence: DE)
  Receive Date: 20130530
  Receipt Date: 20130604
  Transmission Date: 20140414
  Serious: Yes (Other)
  Sender: FDA-Public Use
  Company Number: DE-AMGEN-DEUSP2013032586

PATIENT
  Age: 42 Year
  Sex: Female

DRUGS (2)
  1. ENBREL [Suspect]
     Indication: RHEUMATOID ARTHRITIS
     Dosage: 50 MG, WEEKLY
     Route: 058
     Dates: start: 20121109, end: 20130423
  2. MTX /00113802/ [Suspect]
     Dosage: 2.5 MG, WEEKLY
     Route: 048
     Dates: start: 20121109, end: 20130423

REACTIONS (7)
  - White blood cell count decreased [Recovered/Resolved]
  - Red blood cell sedimentation rate increased [Unknown]
  - Monocyte count increased [Recovered/Resolved]
  - Neutrophil count decreased [Recovered/Resolved]
  - Lymphocyte count increased [Recovered/Resolved]
  - C-reactive protein increased [Recovered/Resolved]
  - Platelet count increased [Unknown]
